FAERS Safety Report 14546123 (Version 1)
Quarter: 2018Q1

REPORT INFORMATION
  Report Type: Spontaneous
  Country: US (occurrence: US)
  Receive Date: 20180219
  Receipt Date: 20180219
  Transmission Date: 20180509
  Serious: No
  Sender: FDA-Public Use
  Company Number: US-BIOGEN-2017BI00436564

PATIENT
  Age: 31 Year
  Sex: Female

DRUGS (2)
  1. TYSABRI [Suspect]
     Active Substance: NATALIZUMAB
     Indication: MULTIPLE SCLEROSIS
     Route: 042
     Dates: start: 20120820, end: 20130621
  2. TYSABRI [Suspect]
     Active Substance: NATALIZUMAB
     Route: 065
     Dates: start: 20170829

REACTIONS (5)
  - Influenza like illness [Recovered/Resolved]
  - Hypoaesthesia [Unknown]
  - Hypertension [Recovered/Resolved]
  - Gait disturbance [Unknown]
  - Urinary retention [Unknown]

NARRATIVE: CASE EVENT DATE: 201302
